FAERS Safety Report 7248721-X (Version None)
Quarter: 2011Q1

REPORT INFORMATION
  Report Type: 
  Country: None (occurrence: None)
  Receive Date: 20110128
  Receipt Date: 20101214
  Transmission Date: 20110831
  Serious: Yes (Other)
  Sender: FDA-Public Use
  Company Number: US-BAYER-2011-008806

PATIENT
  Sex: Male
  Weight: 91 kg

DRUGS (1)
  1. PHILLIPS' MILK OF MAGNESIA LIQUID ORIGINAL [Suspect]
     Indication: CONSTIPATION
     Dosage: 3-4 TABLESPOONS 4 TIMES IN THREE WEEKS
     Route: 048
     Dates: end: 20101208

REACTIONS (2)
  - PHARYNGEAL OEDEMA [None]
  - DYSPHAGIA [None]
